FAERS Safety Report 19592195 (Version 1)
Quarter: 2021Q3

REPORT INFORMATION
  Report Type: Report from Study
  Country: US (occurrence: US)
  Receive Date: 20210722
  Receipt Date: 20210722
  Transmission Date: 20211014
  Serious: Yes (Hospitalization, Other)
  Sender: FDA-Public Use
  Company Number: US-GILEAD-2021-0541063

PATIENT
  Sex: Male

DRUGS (25)
  1. BELBUCA [Concomitant]
     Active Substance: BUPRENORPHINE HYDROCHLORIDE
  2. CIPROFLOXACIN. [Concomitant]
     Active Substance: CIPROFLOXACIN
  3. HYDROCORT [HYDROCORTISONE ACETATE] [Concomitant]
     Active Substance: HYDROCORTISONE ACETATE
  4. TIZANIDINE. [Concomitant]
     Active Substance: TIZANIDINE
  5. METHOCARBAMOL. [Concomitant]
     Active Substance: METHOCARBAMOL
  6. INCRUSE ELLIPTA [Concomitant]
     Active Substance: UMECLIDINIUM BROMIDE
  7. AZTREONAM LYSINE [Suspect]
     Active Substance: AZTREONAM LYSINE
     Indication: BRONCHIECTASIS
     Dosage: 1 VIAL
     Route: 055
     Dates: start: 20190730
  8. AMOXICILLIN AND CLAVULA. POTASSIUM [Concomitant]
     Active Substance: AMOXICILLIN\CLAVULANATE POTASSIUM
  9. BUPRENORPHINE. [Concomitant]
     Active Substance: BUPRENORPHINE
  10. CARVEDILOL. [Concomitant]
     Active Substance: CARVEDILOL
  11. POTASSIUM CHLORIDE. [Concomitant]
     Active Substance: POTASSIUM CHLORIDE
  12. PREDNISONE. [Concomitant]
     Active Substance: PREDNISONE
  13. XARELTO [Concomitant]
     Active Substance: RIVAROXABAN
  14. BENZONATATE. [Concomitant]
     Active Substance: BENZONATATE
  15. DOFETILIDE. [Concomitant]
     Active Substance: DOFETILIDE
  16. ENTRESTO [Concomitant]
     Active Substance: SACUBITRIL\VALSARTAN
  17. FUROSEMIDE. [Concomitant]
     Active Substance: FUROSEMIDE
  18. METHYLPRED [Concomitant]
     Active Substance: METHYLPREDNISOLONE
  19. ARNUITY ELLIPTA [Concomitant]
     Active Substance: FLUTICASONE FUROATE
  20. ATORVASTATIN [Concomitant]
     Active Substance: ATORVASTATIN
  21. FLUOXETINE [Concomitant]
     Active Substance: FLUOXETINE HYDROCHLORIDE
  22. SYNTHROID [Concomitant]
     Active Substance: LEVOTHYROXINE SODIUM
  23. GABAPENTIN. [Concomitant]
     Active Substance: GABAPENTIN
  24. LEVOTHYROXINE. [Concomitant]
     Active Substance: LEVOTHYROXINE
  25. SOLIFENACIN [Concomitant]
     Active Substance: SOLIFENACIN

REACTIONS (2)
  - Off label use [Not Recovered/Not Resolved]
  - Pseudomonas infection [Unknown]
